FAERS Safety Report 22297646 (Version 2)
Quarter: 2023Q2

REPORT INFORMATION
  Report Type: Report from Study
  Country: CA (occurrence: CA)
  Receive Date: 20230509
  Receipt Date: 20230511
  Transmission Date: 20230722
  Serious: Yes (Hospitalization)
  Sender: FDA-Public Use
  Company Number: CA-JNJFOC-20210231645

PATIENT
  Age: 65 Year
  Sex: Male
  Weight: 64.41 kg

DRUGS (3)
  1. STELARA [Suspect]
     Active Substance: USTEKINUMAB
     Indication: Crohn^s disease
     Dosage: EXPIRY DATE 28-FEB-2025
     Route: 058
     Dates: start: 20190930
  2. STELARA [Suspect]
     Active Substance: USTEKINUMAB
     Dosage: DRUG HOLIDAY WITH RE-INDUCTION OR MAINTENANCE OTHER THAN Q8WEEK OR Q12WEEK
     Route: 042
     Dates: start: 20210816
  3. STELARA [Suspect]
     Active Substance: USTEKINUMAB
     Route: 058

REACTIONS (5)
  - Post procedural infection [Unknown]
  - Adenocarcinoma of colon [Recovered/Resolved]
  - Incisional hernia [Recovering/Resolving]
  - Large intestine infection [Recovering/Resolving]
  - Off label use [Unknown]

NARRATIVE: CASE EVENT DATE: 20210101
